FAERS Safety Report 24887194 (Version 2)
Quarter: 2025Q1

REPORT INFORMATION
  Report Type: Spontaneous
  Country: US (occurrence: US)
  Receive Date: 20250127
  Receipt Date: 20250301
  Transmission Date: 20250409
  Serious: Yes (Other)
  Sender: AUROBINDO
  Company Number: US-AUROBINDO-AUR-APL-2025-003474

PATIENT
  Age: 53 Year
  Sex: Female

DRUGS (20)
  1. METRONIDAZOLE [Suspect]
     Active Substance: METRONIDAZOLE
     Indication: Type 2 diabetes mellitus
     Route: 065
  2. METRONIDAZOLE [Suspect]
     Active Substance: METRONIDAZOLE
     Indication: Obesity
  3. METRONIDAZOLE [Suspect]
     Active Substance: METRONIDAZOLE
     Indication: Urinary tract infection
  4. METRONIDAZOLE [Suspect]
     Active Substance: METRONIDAZOLE
     Indication: Cystitis
  5. METRONIDAZOLE [Suspect]
     Active Substance: METRONIDAZOLE
     Indication: Trichomoniasis
  6. CEPHALEXIN [Suspect]
     Active Substance: CEPHALEXIN
     Indication: Type 2 diabetes mellitus
     Dosage: 500 MILLIGRAM, TWO TIMES A DAY [FOR 7 DAYS]
     Route: 065
  7. CEPHALEXIN [Suspect]
     Active Substance: CEPHALEXIN
     Indication: Obesity
  8. CEPHALEXIN [Suspect]
     Active Substance: CEPHALEXIN
     Indication: Urinary tract infection
  9. CEPHALEXIN [Suspect]
     Active Substance: CEPHALEXIN
     Indication: Cystitis
  10. CEPHALEXIN [Suspect]
     Active Substance: CEPHALEXIN
     Indication: Trichomoniasis
  11. SEMAGLUTIDE [Suspect]
     Active Substance: SEMAGLUTIDE
     Indication: Type 2 diabetes mellitus
     Dosage: 0.25 MILLIGRAM, EVERY WEEK 7 DAYS
     Route: 058
  12. SEMAGLUTIDE [Suspect]
     Active Substance: SEMAGLUTIDE
     Indication: Obesity
     Dosage: 0.5 MILLIGRAM, EVERY WEEK
     Route: 058
  13. SEMAGLUTIDE [Suspect]
     Active Substance: SEMAGLUTIDE
     Indication: Urinary tract infection
     Dosage: 1 MILLIGRAM, EVERY WEEK
     Route: 058
  14. SEMAGLUTIDE [Suspect]
     Active Substance: SEMAGLUTIDE
     Indication: Cystitis
  15. SEMAGLUTIDE [Suspect]
     Active Substance: SEMAGLUTIDE
     Indication: Trichomoniasis
  16. EMPAGLIFLOZIN [Concomitant]
     Active Substance: EMPAGLIFLOZIN
     Indication: Type 2 diabetes mellitus
     Route: 065
  17. EMPAGLIFLOZIN [Concomitant]
     Active Substance: EMPAGLIFLOZIN
     Route: 065
  18. INSULIN DETEMIR [Concomitant]
     Active Substance: INSULIN DETEMIR
     Indication: Type 2 diabetes mellitus
     Dosage: 50 INTERNATIONAL UNIT, TWO TIMES A DAY
     Route: 065
  19. INSULIN LISPRO [Concomitant]
     Active Substance: INSULIN LISPRO
     Indication: Type 2 diabetes mellitus
     Dosage: 20 INTERNATIONAL UNIT, 3 TIMES A DAY [WITH MEALS]
     Route: 065
  20. INSULIN LISPRO [Concomitant]
     Active Substance: INSULIN LISPRO
     Route: 065

REACTIONS (1)
  - Pancreatitis [Unknown]
